FAERS Safety Report 12521730 (Version 11)
Quarter: 2019Q1

REPORT INFORMATION
  Report Type: Report from Study
  Country: US (occurrence: US)
  Receive Date: 20160701
  Receipt Date: 20190211
  Transmission Date: 20190417
  Serious: Yes (Hospitalization, Disabling, Other)
  Sender: FDA-Public Use
  Company Number: US-SA-2016SA086795

PATIENT
  Age: 65 Year
  Sex: Male

DRUGS (5)
  1. BACLOFEN. [Concomitant]
     Active Substance: BACLOFEN
     Indication: MUSCULOSKELETAL STIFFNESS
     Dosage: 10 MG,UNK
  2. SOLU-MEDROL [Concomitant]
     Active Substance: METHYLPREDNISOLONE SODIUM SUCCINATE
     Dosage: UNK UNK,QM
  3. TERBINAFINE. [Suspect]
     Active Substance: TERBINAFINE
     Dosage: 250 MG,QD
     Route: 048
     Dates: start: 20160513
  4. OCREVUS [Concomitant]
     Active Substance: OCRELIZUMAB
     Dosage: UNK
     Route: 042
     Dates: start: 2017
  5. ALEMTUZUMAB [Suspect]
     Active Substance: ALEMTUZUMAB
     Indication: MULTIPLE SCLEROSIS
     Dosage: 12 MG,QD
     Route: 041
     Dates: start: 20160411, end: 20160415

REACTIONS (30)
  - Asthenia [Not Recovered/Not Resolved]
  - Hypersomnia [Unknown]
  - Hypotonia [Not Recovered/Not Resolved]
  - Ecchymosis [Recovered/Resolved]
  - Drug withdrawal syndrome [Recovered/Resolved]
  - Upper respiratory tract infection [Not Recovered/Not Resolved]
  - Rhinorrhoea [Unknown]
  - Oedema peripheral [Not Recovered/Not Resolved]
  - Diarrhoea [Not Recovered/Not Resolved]
  - Fall [Recovered/Resolved]
  - Coordination abnormal [Not Recovered/Not Resolved]
  - Dehydration [Recovered/Resolved]
  - Dysphonia [Not Recovered/Not Resolved]
  - Muscular weakness [Not Recovered/Not Resolved]
  - Fungal infection [Not Recovered/Not Resolved]
  - Rash erythematous [Recovered/Resolved]
  - Tachycardia [Not Recovered/Not Resolved]
  - Gait disturbance [Not Recovered/Not Resolved]
  - Dyspnoea [Not Recovered/Not Resolved]
  - Erythema [Unknown]
  - Walking aid user [Not Recovered/Not Resolved]
  - Bronchitis [Not Recovered/Not Resolved]
  - Productive cough [Recovering/Resolving]
  - Pneumonia [Recovered/Resolved]
  - Condition aggravated [Not Recovered/Not Resolved]
  - Skin disorder [Not Recovered/Not Resolved]
  - Constipation [Not Recovered/Not Resolved]
  - Fatigue [Not Recovered/Not Resolved]
  - Fall [Recovered/Resolved]
  - Paraesthesia [Not Recovered/Not Resolved]

NARRATIVE: CASE EVENT DATE: 2016
